FAERS Safety Report 5368414-3 (Version None)
Quarter: 2007Q2

REPORT INFORMATION
  Report Type: 
  Country: None (occurrence: None)
  Receive Date: 20070621
  Receipt Date: 20070608
  Transmission Date: 20071010
  Serious: Yes (Hospitalization)
  Sender: FDA-Public Use
  Company Number: FRP07000284

PATIENT
  Age: 63 Year
  Sex: Female

DRUGS (17)
  1. ACTONEL [Suspect]
     Indication: OSTEOPOROSIS
     Dosage: 35 MG, 1/WEEK, ORAL
     Route: 048
     Dates: start: 20061212, end: 20070326
  2. FORADIL /00958001/ (FORMOTEROL) [Concomitant]
  3. SPIRIVA [Concomitant]
  4. NOVATREX /00113801/ (METHOTREXATE) [Concomitant]
  5. SPECIAFOLDINE (FOLIC ACID) [Concomitant]
  6. ACETAMINOPHEN [Concomitant]
  7. FLECTOR /00372302/ (DICLOFENAC SODIUM) [Concomitant]
  8. VOLTARENE /00372302/ (DICLOFENAC SODIUM) [Concomitant]
  9. BRICANYL [Concomitant]
  10. PULMICORT [Concomitant]
  11. MUCOMYST /00082801/ (ACETYLCYSTEINE) [Concomitant]
  12. SEREVENT [Concomitant]
  13. FLUCONAZOLE [Concomitant]
  14. BECONASE [Concomitant]
  15. PREDNISONE TAB [Concomitant]
  16. CACIT D3 (CALCIUM CARBONATE UNK MG, COLECALCIFEROL UNK IU) [Concomitant]
  17. IMOVANE (ZOPICLONE) [Concomitant]

REACTIONS (3)
  - LARYNGEAL DYSPNOEA [None]
  - RESPIRATORY FAILURE [None]
  - VOCAL CORD PARESIS [None]
